FAERS Safety Report 16829769 (Version 1)
Quarter: 2019Q3

REPORT INFORMATION
  Report Type: Report from Study
  Country: BR (occurrence: BR)
  Receive Date: 20190919
  Receipt Date: 20190919
  Transmission Date: 20191005
  Serious: Yes (Life-Threatening, Hospitalization, Other)
  Sender: FDA-Public Use
  Company Number: PHHY2019BR218064

PATIENT
  Age: 22 Year
  Sex: Female

DRUGS (1)
  1. COSENTYX [Suspect]
     Active Substance: SECUKINUMAB
     Indication: PRODUCT USED FOR UNKNOWN INDICATION
     Route: 065

REACTIONS (11)
  - Vein disorder [Unknown]
  - Apparent death [Unknown]
  - Endocarditis [Unknown]
  - Dyspnoea [Unknown]
  - Burns third degree [Unknown]
  - Decreased immune responsiveness [Unknown]
  - Bacterial sepsis [Unknown]
  - Drug ineffective [Unknown]
  - Paradoxical drug reaction [Unknown]
  - Skin lesion [Unknown]
  - Pain [Unknown]

NARRATIVE: CASE EVENT DATE: 20190626
